FAERS Safety Report 4931513-1 (Version None)
Quarter: 2006Q1

REPORT INFORMATION
  Report Type: 
  Country: None (occurrence: None)
  Receive Date: 20060303
  Receipt Date: 20060223
  Transmission Date: 20060701
  Serious: Yes (Hospitalization)
  Sender: FDA-Public Use
  Company Number: PHEH2006US02504

PATIENT
  Age: 52 Year
  Sex: Male

DRUGS (11)
  1. EXJADE [Suspect]
     Indication: BLOOD IRON INCREASED
     Dosage: 500 MG, QD
     Dates: start: 20060208, end: 20060211
  2. LUNESTA [Concomitant]
  3. POTASSIUM [Concomitant]
  4. AMITRIP [Concomitant]
  5. ZOCOR [Concomitant]
  6. QUININE [Concomitant]
  7. PHENERGAN [Concomitant]
  8. FLOMAX [Concomitant]
  9. VERELAN [Concomitant]
  10. WARFARIN [Concomitant]
  11. ASPIRIN [Concomitant]

REACTIONS (5)
  - BLOOD BILIRUBIN INCREASED [None]
  - BLOOD CREATININE INCREASED [None]
  - ENCEPHALOPATHY [None]
  - PYREXIA [None]
  - WHITE BLOOD CELL COUNT INCREASED [None]
